FAERS Safety Report 23452215 (Version 1)
Quarter: 2024Q1

REPORT INFORMATION
  Report Type: Spontaneous
  Country: GB (occurrence: GB)
  Receive Date: 20240129
  Receipt Date: 20240129
  Transmission Date: 20240409
  Serious: Yes (Other)
  Sender: FDA-Public Use
  Company Number: GB-002147023-NVSC2024GB015848

PATIENT
  Sex: Female

DRUGS (1)
  1. MAYZENT [Suspect]
     Active Substance: SIPONIMOD
     Indication: Multiple sclerosis
     Dosage: 1 DOSAGE FORM
     Route: 048
     Dates: start: 202309

REACTIONS (4)
  - Malignant melanoma [Unknown]
  - Melanocytic naevus [Unknown]
  - Disease progression [Unknown]
  - Drug ineffective [Unknown]
